FAERS Safety Report 7647842-7 (Version None)
Quarter: 2011Q3

REPORT INFORMATION
  Report Type: 
  Country: None (occurrence: None)
  Receive Date: 20110726
  Receipt Date: 20110714
  Transmission Date: 20111222
  Serious: Yes (Hospitalization)
  Sender: FDA-Public Use
  Company Number: 981349

PATIENT
  Age: 75 Year
  Sex: Male

DRUGS (6)
  1. (INVESTIGATIONAL DRUG) [Concomitant]
  2. CARBOPLATIN [Suspect]
     Indication: BLADDER TRANSITIONAL CELL CARCINOMA
     Dosage: 330 MG MILLIGRAM(S), INTRAVENOUS (NOT OTHERWISE SPECIFIED)
     Route: 042
     Dates: start: 20110119, end: 20110119
  3. ASPIRIN [Concomitant]
  4. TAMSULOSIN HCL [Concomitant]
  5. GEMCITABINE HYDROCHLORIDE [Suspect]
     Indication: BLADDER TRANSITIONAL CELL CARCINOMA
     Dosage: 2000 MG MILLIGRAM(S), INTRAVENOUS (NOT OTHERWISE SPECIFIED)
     Route: 042
     Dates: start: 20110119, end: 20110126
  6. PREDNISOLONE [Concomitant]

REACTIONS (4)
  - DIZZINESS [None]
  - FALL [None]
  - ADRENAL INSUFFICIENCY [None]
  - ORTHOSTATIC HYPOTENSION [None]
